FAERS Safety Report 9454815 (Version 1)
Quarter: 2013Q3

REPORT INFORMATION
  Report Type: Spontaneous
  Country: US (occurrence: US)
  Receive Date: 20130812
  Receipt Date: 20130812
  Transmission Date: 20140515
  Serious: No
  Sender: FDA-Public Use
  Company Number: US-B.I. PHARMACEUTICALS,INC./RIDGEFIELD-2013-BI-23704BP

PATIENT
  Age: 45 Year
  Sex: Female

DRUGS (2)
  1. COMBIVENT [Suspect]
     Indication: CHRONIC OBSTRUCTIVE PULMONARY DISEASE
     Dosage: 20 MCG / 100 MCG: 80 MCG/400 MCG
     Route: 055
     Dates: start: 201307
  2. OXYGEN [Concomitant]
     Dates: start: 2003

REACTIONS (3)
  - Pulmonary congestion [Not Recovered/Not Resolved]
  - Sinusitis [Not Recovered/Not Resolved]
  - Medication error [Not Recovered/Not Resolved]
